FAERS Safety Report 22210747 (Version 1)
Quarter: 2023Q2

REPORT INFORMATION
  Report Type: Report from Study
  Country: CA (occurrence: CA)
  Receive Date: 20230414
  Receipt Date: 20230414
  Transmission Date: 20230722
  Serious: Yes (Death, Hospitalization, Other)
  Sender: FDA-Public Use
  Company Number: CA-GILEAD-2023-0622361

PATIENT
  Sex: Female

DRUGS (4)
  1. SACITUZUMAB GOVITECAN-HZIY [Suspect]
     Active Substance: SACITUZUMAB GOVITECAN-HZIY
     Indication: Triple negative breast cancer
     Dosage: 550 MG
     Route: 042
     Dates: start: 20230130
  2. SACITUZUMAB GOVITECAN-HZIY [Suspect]
     Active Substance: SACITUZUMAB GOVITECAN-HZIY
     Dosage: 550 MG
     Route: 042
     Dates: start: 20230227
  3. CAPECITABINE [Concomitant]
     Active Substance: CAPECITABINE
  4. TAXOL [Concomitant]
     Active Substance: PACLITAXEL

REACTIONS (5)
  - Death [Fatal]
  - Ascites [Unknown]
  - Decreased appetite [Unknown]
  - Fatigue [Unknown]
  - Inappropriate schedule of product administration [Not Recovered/Not Resolved]
